FAERS Safety Report 7041731-7 (Version None)
Quarter: 2010Q4

REPORT INFORMATION
  Report Type: 
  Country: None (occurrence: None)
  Receive Date: 20101013
  Receipt Date: 20100224
  Transmission Date: 20110411
  Serious: No
  Sender: FDA-Public Use
  Company Number: US-ASTRAZENECA-2010SE08113

PATIENT
  Age: 89 Year
  Sex: Female

DRUGS (1)
  1. SYMBICORT [Suspect]
     Dosage: 80/4.5 UG
     Route: 055
     Dates: start: 20100129, end: 20100201

REACTIONS (2)
  - COUGH [None]
  - INCREASED UPPER AIRWAY SECRETION [None]
